FAERS Safety Report 19906250 (Version 1)
Quarter: 2021Q3

REPORT INFORMATION
  Report Type: Spontaneous
  Country: NL (occurrence: NL)
  Receive Date: 20210930
  Receipt Date: 20210930
  Transmission Date: 20211014
  Serious: Yes (Hospitalization, Other)
  Sender: FDA-Public Use
  Company Number: NL-MYLANLABS-2021M1066905

PATIENT
  Age: 64 Year
  Sex: Male
  Weight: 80 kg

DRUGS (20)
  1. IPRATROPIUM [Concomitant]
     Active Substance: IPRATROPIUM
     Dosage: AEROSOL, 20 ?G/DOSIS (MICROGRAM PER DOSIS)
  2. BACLOFEN. [Concomitant]
     Active Substance: BACLOFEN
     Dosage: TABLET, 10 MG (MILLIGRAM)
  3. AMLODIPINE [Concomitant]
     Active Substance: AMLODIPINE BESYLATE
     Dosage: TABLET, 5 MG (MILLIGRAM)
  4. ASCAL                              /00800002/ [Concomitant]
     Active Substance: CARBASPIRIN
     Dosage: BRUISTABLET, 38 MG (MILLIGRAM)
  5. PREGABALINE [Concomitant]
     Active Substance: PREGABALIN
     Dosage: CAPSULE, 75 MG (MILLIGRAM)
  6. LISINOPRIL. [Concomitant]
     Active Substance: LISINOPRIL
     Dosage: TABLET, 10 MG (MILLIGRAM)
  7. CARBOMER [Concomitant]
     Active Substance: CARBOMER
     Dosage: EYE GEL, 3MG/G (MILLIGRAMS PERGRAM)
  8. ASTRAZENECA COVID?19 VACCINE [Suspect]
     Active Substance: AZD-1222
     Indication: COVID-19 IMMUNISATION
     Dosage: UNK
     Dates: start: 20210503
  9. MESALAZINE [Concomitant]
     Active Substance: MESALAMINE
     Dosage: ZETPIL, 500 MG (MILLIGRAM)
  10. FOLIUMZUUR [Concomitant]
     Active Substance: FOLIC ACID
     Dosage: TABLET, 5 MG (MILLIGRAM)
  11. ISOSORBIDEDINITRAAT [Concomitant]
     Dosage: CREAM FOR RECTAL USE,, 10 MG/G (MILLIGRAM PER GRAM)
  12. PAROXETINE. [Concomitant]
     Active Substance: PAROXETINE
     Dosage: TABLET, 20 MG (MILLIGRAM)
  13. BUDESONIDE W/FORMOTEROL [Concomitant]
     Active Substance: BUDESONIDE\FORMOTEROL
     Dosage: AEROSOL, 200/6 ?G/DOSIS (MICROGRAM PER DOSIS)
  14. BUPRENORPHINE. [Concomitant]
     Active Substance: BUPRENORPHINE
     Dosage: PLASTER,, 5 ?G (MICROGRAM) PER HOUR
  15. SUCRALFAAT [Concomitant]
     Dosage: SUSPENSION, 1 G(GRAMS),
  16. ESOMEPRAZOL                        /01479301/ [Concomitant]
     Active Substance: ESOMEPRAZOLE
     Dosage: GASTRO?RESISTANT CAPSULE, 40MG (MILLIGRAMS)
  17. ADROVANCE [Concomitant]
     Active Substance: ALENDRONATE SODIUM\CHOLECALCIFEROL
     Dosage: TABLET, 70 MG (MILLIGRAM)/2800 EENHEDEN
  18. PREDNISOLONE. [Suspect]
     Active Substance: PREDNISOLONE
     Indication: SARCOIDOSIS
     Dosage: QD, 1 DAILY
     Dates: start: 20210113
  19. METHOTREXAAT                       /00113801/ [Suspect]
     Active Substance: METHOTREXATE SODIUM
     Indication: SARCOIDOSIS
     Dosage: 2PIECES EVERY FRIDAY
     Dates: start: 20210115
  20. BUPRENORPHINE. [Concomitant]
     Active Substance: BUPRENORPHINE
     Dosage: PLASTER, 20 ?G (MICROGRAM) PER HOUR

REACTIONS (1)
  - Pulmonary embolism [Not Recovered/Not Resolved]

NARRATIVE: CASE EVENT DATE: 20210517
